FAERS Safety Report 16136883 (Version 7)
Quarter: 2020Q4

REPORT INFORMATION
  Report Type: Report from Study
  Country: US (occurrence: US)
  Receive Date: 20190329
  Receipt Date: 20201101
  Transmission Date: 20210113
  Serious: Yes (Death, Other)
  Sender: FDA-Public Use
  Company Number: PHHY2019US070440

PATIENT
  Age: 73 Year
  Sex: Female

DRUGS (3)
  1. KYMRIAH [Suspect]
     Active Substance: TISAGENLECLEUCEL
     Indication: DIFFUSE LARGE B-CELL LYMPHOMA
     Dosage: UNK UNK, ONCE/SINGLE
     Route: 041
     Dates: start: 20181008
  2. CYCLOPHOSPHAMIDE. [Concomitant]
     Active Substance: CYCLOPHOSPHAMIDE
     Indication: CHEMOTHERAPY
     Route: 065
  3. FLUDARABINE [Concomitant]
     Active Substance: FLUDARABINE PHOSPHATE
     Indication: CHEMOTHERAPY
     Route: 065

REACTIONS (12)
  - Malignant neoplasm progression [Fatal]
  - Neutrophil count decreased [Recovered/Resolved]
  - Haemoglobin decreased [Unknown]
  - Lymphocyte count decreased [Unknown]
  - Platelet count decreased [Unknown]
  - Out of specification test results [Unknown]
  - Cytokine release syndrome [Recovered/Resolved]
  - White blood cell count decreased [Unknown]
  - Haematocrit decreased [Unknown]
  - Diffuse large B-cell lymphoma [Fatal]
  - Hypogammaglobulinaemia [Unknown]
  - Pyrexia [Unknown]
